FAERS Safety Report 8986319 (Version 2)
Quarter: 2013Q1

REPORT INFORMATION
  Report Type: Spontaneous
  Country: JP (occurrence: JP)
  Receive Date: 20121226
  Receipt Date: 20130226
  Transmission Date: 20140127
  Serious: Yes (Hospitalization)
  Sender: FDA-Public Use
  Company Number: JP-ELI_LILLY_AND_COMPANY-JP201212006290

PATIENT
  Age: 61 Year
  Sex: Male

DRUGS (1)
  1. GEMZAR [Suspect]
     Indication: BILE DUCT CANCER
     Dosage: UNK
     Route: 042

REACTIONS (4)
  - Vascular pseudoaneurysm ruptured [Unknown]
  - Cholangitis [Recovering/Resolving]
  - Jaundice cholestatic [Unknown]
  - Haemoglobin decreased [Unknown]
